FAERS Safety Report 6237968-7 (Version None)
Quarter: 2009Q2

REPORT INFORMATION
  Report Type: 
  Country: None (occurrence: None)
  Receive Date: 20090617
  Receipt Date: 20090617
  Transmission Date: 20091009
  Serious: Yes (Life-Threatening)
  Sender: FDA-Public Use
  Company Number: None

PATIENT
  Age: 49 Year
  Sex: Female

DRUGS (1)
  1. ETRAVIRINE 100 MG TIBOTEC ETRAVIRINE [Suspect]
     Indication: HIV INFECTION
     Dosage: 100 MG (TOTAL: 400 MG) TWICE A DAY ORAL
     Route: 048
     Dates: start: 20090409, end: 20090428

REACTIONS (2)
  - ACUTE HEPATIC FAILURE [None]
  - HEPATITIS [None]
